FAERS Safety Report 5705070-6 (Version None)
Quarter: 2008Q2

REPORT INFORMATION
  Report Type: 
  Country: None (occurrence: None)
  Receive Date: 20080410
  Receipt Date: 20080402
  Transmission Date: 20081010
  Serious: Yes (Other)
  Sender: FDA-Public Use
  Company Number: 2008SP005407

PATIENT
  Age: 69 Year
  Sex: Female
  Weight: 65.7716 kg

DRUGS (6)
  1. MIRALAX [Suspect]
     Indication: CONSTIPATION
     Dosage: 17 GM; QD; PO
     Route: 048
     Dates: start: 20080306, end: 20080312
  2. LESCOL [Concomitant]
  3. CARDIA [Concomitant]
  4. ZYRTEC [Concomitant]
  5. PRILOSEC [Concomitant]
  6. ZOLOFT [Concomitant]

REACTIONS (2)
  - ABDOMINAL PAIN [None]
  - HAEMATOCHEZIA [None]
